FAERS Safety Report 22641428 (Version 1)
Quarter: 2023Q2

REPORT INFORMATION
  Report Type: Spontaneous
  Country: CN (occurrence: CN)
  Receive Date: 20230626
  Receipt Date: 20230626
  Transmission Date: 20230721
  Serious: Yes (Other)
  Sender: FDA-Public Use
  Company Number: CN-JNJFOC-20230642996

PATIENT

DRUGS (1)
  1. DARZALEX [Suspect]
     Active Substance: DARATUMUMAB
     Indication: Plasma cell myeloma refractory
     Route: 065

REACTIONS (5)
  - Blood disorder [Unknown]
  - Neutropenia [Unknown]
  - Infection [Unknown]
  - Pneumonia [Unknown]
  - Infusion related reaction [Unknown]
